FAERS Safety Report 6407355-7 (Version None)
Quarter: 2009Q4

REPORT INFORMATION
  Report Type: 
  Country: None (occurrence: None)
  Receive Date: 20091014
  Receipt Date: 20091002
  Transmission Date: 20100525
  Serious: Yes (Other)
  Sender: FDA-Public Use
  Company Number: CIR-FR-302-09

PATIENT
  Age: 26 Year
  Sex: Female

DRUGS (9)
  1. CIRCADIN (MELATONIN) (MELATONIN) [Suspect]
     Indication: HYPERSOMNIA
     Dosage: 6 MG (2 MG),ORAL
     Route: 048
     Dates: start: 20000101
  2. CIRCADIN (MELATONIN) (MELATONIN) [Suspect]
     Indication: SLEEP DISORDER
     Dosage: 6 MG (2 MG),ORAL
     Route: 048
     Dates: start: 20000101
  3. FONZYLANE (BUFLOMEDIL HYDROCHLORIDE) [Suspect]
     Dosage: 150 MG (150 MG),ORAL
     Route: 048
     Dates: start: 20080619, end: 20080620
  4. TEGRETOL [Concomitant]
  5. NEORAL [Concomitant]
  6. SOLU-MEDROL [Concomitant]
  7. MYCOPHENOLATE MOFETIL [Concomitant]
  8. CORTICOID NOS (DEXAMETHASONE SODIUM PHOSPHATE) [Concomitant]
  9. AZATHIOPRINE [Concomitant]

REACTIONS (10)
  - BLOOD CREATININE INCREASED [None]
  - DEAFNESS [None]
  - EPILEPSY [None]
  - GRAND MAL CONVULSION [None]
  - HAEMOGLOBIN DECREASED [None]
  - HALLUCINATION, AUDITORY [None]
  - JOINT SPRAIN [None]
  - OVERDOSE [None]
  - VERTIGO [None]
  - WEIGHT INCREASED [None]
